FAERS Safety Report 24415709 (Version 4)
Quarter: 2024Q4

REPORT INFORMATION
  Report Type: Spontaneous
  Country: GB (occurrence: GB)
  Receive Date: 20241009
  Receipt Date: 20241107
  Transmission Date: 20250114
  Serious: Yes (Hospitalization, Other)
  Sender: MYLAN
  Company Number: GB-MYLANLABS-2024M1090673

PATIENT
  Sex: Male
  Weight: 92 kg

DRUGS (3)
  1. CLOZARIL [Suspect]
     Active Substance: CLOZAPINE
     Indication: Schizophrenia
     Dosage: 275 MILLIGRAM, QD (200MG BREAKFAST AND 75MG BEDTIME, TEA TIME)
     Route: 048
     Dates: start: 20030114, end: 20240930
  2. CLOZARIL [Suspect]
     Active Substance: CLOZAPINE
     Dosage: UNK, TID (250+75+250)
     Route: 048
     Dates: end: 20240928
  3. AMISULPRIDE [Concomitant]
     Active Substance: AMISULPRIDE
     Dosage: UNK
     Route: 065

REACTIONS (8)
  - Abdominal pain upper [Unknown]
  - Abdominal distension [Unknown]
  - Mental impairment [Unknown]
  - Drug dependence [Unknown]
  - Vomiting [Unknown]
  - Intestinal obstruction [Recovered/Resolved]
  - Malaise [Unknown]
  - Psychotic disorder [Unknown]
